FAERS Safety Report 8325139-X (Version None)
Quarter: 2012Q2

REPORT INFORMATION
  Report Type: 
  Country: None (occurrence: None)
  Receive Date: 20120427
  Receipt Date: 20120416
  Transmission Date: 20120825
  Serious: Yes (Other)
  Sender: FDA-Public Use
  Company Number: 2012P1014749

PATIENT
  Age: 54 Year
  Sex: Female

DRUGS (1)
  1. MEPERIDINE HYDROCHLORIDE [Suspect]
     Indication: SEDATION
     Dosage: 50 MG; ;PARN
     Route: 051

REACTIONS (4)
  - STRESS CARDIOMYOPATHY [None]
  - ANAPHYLACTOID REACTION [None]
  - VENTRICULAR TACHYCARDIA [None]
  - ELECTROCARDIOGRAM ST SEGMENT ELEVATION [None]
